FAERS Safety Report 15547763 (Version 1)
Quarter: 2018Q4

REPORT INFORMATION
  Report Type: Spontaneous
  Country: HR (occurrence: HR)
  Receive Date: 20181024
  Receipt Date: 20181024
  Transmission Date: 20190205
  Serious: Yes (Other)
  Sender: FDA-Public Use
  Company Number: HR-INDIVIOR LIMITED-INDV-115115-2018

PATIENT
  Sex: Male

DRUGS (2)
  1. ALPRAZOLAM. [Suspect]
     Active Substance: ALPRAZOLAM
     Indication: PRODUCT USED FOR UNKNOWN INDICATION
     Dosage: 5 MG, ONCE
     Route: 045
     Dates: start: 20180712, end: 20180712
  2. SUBUTEX [Suspect]
     Active Substance: BUPRENORPHINE HYDROCHLORIDE
     Indication: PRODUCT USED FOR UNKNOWN INDICATION
     Dosage: ONE DOSE
     Route: 045
     Dates: start: 20180712, end: 20180712

REACTIONS (5)
  - Suicide attempt [Unknown]
  - Intentional product use issue [Recovered/Resolved]
  - Intentional overdose [Unknown]
  - Miosis [Unknown]
  - Hypotension [Unknown]

NARRATIVE: CASE EVENT DATE: 20180712
